FAERS Safety Report 9983090 (Version 1)
Quarter: 2014Q1

REPORT INFORMATION
  Report Type: Report from Study
  Country: US (occurrence: US)
  Receive Date: 20140307
  Receipt Date: 20140307
  Transmission Date: 20141002
  Serious: No
  Sender: FDA-Public Use
  Company Number: US-ABBVIE-13P-163-1176323-00

PATIENT
  Sex: Male
  Weight: 86.26 kg

DRUGS (5)
  1. HUMIRA [Suspect]
     Indication: RHEUMATOID ARTHRITIS
     Dates: start: 2011, end: 2012
  2. FOLIC ACID [Concomitant]
     Indication: ARTHRITIS
  3. MELOXICAM [Concomitant]
     Indication: RHEUMATOID ARTHRITIS
  4. METHOTREXATE [Concomitant]
     Indication: RHEUMATOID ARTHRITIS
  5. LISINOPRIL [Concomitant]
     Indication: HYPERTENSION

REACTIONS (3)
  - Arthralgia [Not Recovered/Not Resolved]
  - Furuncle [Recovered/Resolved]
  - Skin bacterial infection [Recovered/Resolved]
